FAERS Safety Report 10129580 (Version 2)
Quarter: 2014Q2

REPORT INFORMATION
  Report Type: Spontaneous
  Country: CA (occurrence: None)
  Receive Date: 20140424
  Receipt Date: 20140605
  Transmission Date: 20141212
  Serious: Yes (Hospitalization)
  Sender: FDA-Public Use
  Company Number: CA-015393

PATIENT
  Age: 77 Year
  Sex: Male

DRUGS (7)
  1. FIRMAGON /01764801/ (FIRMAGON) (240 MG, 80 MG) (NOT SPECIFIED) [Suspect]
     Indication: PROSTATE CANCER
     Route: 058
     Dates: start: 20140403, end: 20140403
  2. AMLODIPINE [Concomitant]
  3. ESCITALOPRAM [Concomitant]
  4. LASIX [Concomitant]
  5. METFORMIN [Concomitant]
  6. METOPROLOL [Concomitant]
  7. ROSUVASTATIN [Concomitant]

REACTIONS (4)
  - Cardiac failure congestive [None]
  - Pyrexia [None]
  - Confusional state [None]
  - Arthritis infective [None]
